FAERS Safety Report 4708857-1 (Version None)
Quarter: 2005Q3

REPORT INFORMATION
  Report Type: 
  Country: None (occurrence: None)
  Receive Date: 20050705
  Receipt Date: 20050624
  Transmission Date: 20060218
  Serious: Yes (Death, Other)
  Sender: FDA-Public Use
  Company Number: 2005FR-00037

PATIENT
  Age: 45 Year
  Sex: Male
  Weight: 114 kg

DRUGS (4)
  1. FLUOXETINE [Suspect]
     Indication: DEPRESSION
     Dosage: 20 MG, ORAL
     Route: 048
     Dates: start: 20041222
  2. LOSEC [Concomitant]
  3. SALBUTAMOL [Concomitant]
  4. SRETIDE [Concomitant]

REACTIONS (1)
  - ASTHMA [None]
